FAERS Safety Report 24658941 (Version 1)
Quarter: 2024Q4

REPORT INFORMATION
  Report Type: Other
  Country: ES (occurrence: ES)
  Receive Date: 20241125
  Receipt Date: 20241125
  Transmission Date: 20250114
  Serious: Yes (Other)
  Sender: BIOCON
  Company Number: None

PATIENT

DRUGS (5)
  1. TRASTUZUMAB [Suspect]
     Active Substance: TRASTUZUMAB
     Indication: Breast cancer
     Dosage: 6 MILLIGRAM/KILOGRAM, Q3W; 6 MG/KG, 1 IN 3 WEEKS (LOADING DOSE OF 8 MG PER KG) DOSE  UNIT FREQUENCY:
     Route: 065
  2. FILGRASTIM [Suspect]
     Active Substance: FILGRASTIM
     Indication: Breast cancer
     Dosage: 5 MILLIGRAM/KILOGRAM; 5 MG/KG, (DAYS 3 TO 10 OF EACH CYCLE) DOSE UNIT FREQUENCY:  5 MG/KG - MILLIGRA
     Route: 065
  3. DOXORUBICIN [Suspect]
     Active Substance: DOXORUBICIN
     Indication: Breast cancer
     Dosage: 60 MILLIGRAM/SQ. METER; 60 MG/M?, UNK (4 CYCLES) DOSE UNIT FREQUENCY: 60  MG/M? - MILLIGRAMS/SQUARE
     Route: 065
  4. CYCLOPHOSPHAMIDE [Suspect]
     Active Substance: CYCLOPHOSPHAMIDE
     Indication: Breast cancer
     Dosage: 600 MILLIGRAM/SQ. METER, Q2W; 600 MG/M?, 1 IN 2 WEEKS DOSE UNIT FREQUENCY: 600 MG/M? -  MILLIGRAMS/S
     Route: 065
  5. DOCETAXEL [Suspect]
     Active Substance: DOCETAXEL
     Indication: Breast cancer
     Dosage: 100 MILLIGRAM/SQ. METER, Q3W; 100 MG/M?, 1 IN 3 WEEKS DOSE UNIT FREQUENCY: 100 MG/M? -  MILLIGRAMS/S
     Route: 065

REACTIONS (6)
  - Palmar-plantar erythrodysaesthesia syndrome [Unknown]
  - Asthenia [Unknown]
  - Febrile neutropenia [Unknown]
  - Nausea [Unknown]
  - Neutropenia [Unknown]
  - Vomiting [Unknown]
